FAERS Safety Report 6551316-4 (Version None)
Quarter: 2010Q1

REPORT INFORMATION
  Report Type: 
  Country: None (occurrence: None)
  Receive Date: 20100120
  Receipt Date: 20100113
  Transmission Date: 20100710
  Serious: Yes (Other)
  Sender: FDA-Public Use
  Company Number: 2010SP003162

PATIENT
  Age: 32 Year
  Sex: Female

DRUGS (1)
  1. IMPLANON [Suspect]
     Indication: CONTRACEPTION
     Dosage: 1 DF

REACTIONS (4)
  - DEVICE DISLOCATION [None]
  - OVARIAN CYST [None]
  - POST PROCEDURAL COMPLICATION [None]
  - UTERINE LEIOMYOMA [None]
